FAERS Safety Report 15670202 (Version 1)
Quarter: 2018Q4

REPORT INFORMATION
  Report Type: Spontaneous
  Country: US (occurrence: US)
  Receive Date: 20181119
  Receipt Date: 20181119
  Transmission Date: 20190205
  Serious: Yes (Hospitalization)
  Sender: FDA-Public Use
  Company Number: None

PATIENT
  Sex: Female

DRUGS (1)
  1. IBRANCE [Suspect]
     Active Substance: PALBOCICLIB
     Indication: BREAST CANCER
     Dosage: ?          OTHER FREQUENCY:DAILY FOR 21D/28D;?
     Route: 048
     Dates: start: 20180718

REACTIONS (4)
  - Product dispensing error [None]
  - Dizziness [None]
  - Salivary hypersecretion [None]
  - Cardiac disorder [None]
